FAERS Safety Report 5765385-2 (Version None)
Quarter: 2008Q2

REPORT INFORMATION
  Report Type: 
  Country: None (occurrence: None)
  Receive Date: 20080611
  Receipt Date: 20080530
  Transmission Date: 20081010
  Serious: Yes (Other)
  Sender: FDA-Public Use
  Company Number: BE-ELI_LILLY_AND_COMPANY-BE200806000028

PATIENT
  Age: 41 Year
  Sex: Female

DRUGS (5)
  1. CYMBALTA [Suspect]
     Indication: DEPRESSION
     Dosage: UNK, UNKNOWN HIGH DOSE
     Route: 065
  2. SERLAIN [Concomitant]
     Dosage: UNK, UNKNOWN
     Route: 065
  3. ACTONEL [Concomitant]
     Dosage: UNK, UNKNOWN
     Route: 065
  4. CALCIUM [Concomitant]
     Dosage: UNK, UNKNOWN
     Route: 065
  5. ALPRAZOLAM [Concomitant]
     Dosage: UNK, AS NEEDED
     Route: 065

REACTIONS (2)
  - BIPOLAR I DISORDER [None]
  - SUICIDE ATTEMPT [None]
